FAERS Safety Report 7961362-1 (Version None)
Quarter: 2011Q4

REPORT INFORMATION
  Report Type: 
  Country: None (occurrence: None)
  Receive Date: 20111207
  Receipt Date: 20111125
  Transmission Date: 20120403
  Serious: Yes (Hospitalization)
  Sender: FDA-Public Use
  Company Number: JP-ELI_LILLY_AND_COMPANY-JP201110005833

PATIENT
  Age: 70 Year
  Sex: Male

DRUGS (12)
  1. GEMZAR [Suspect]
     Indication: PANCREATIC CARCINOMA
     Dosage: 1000 MG/M2, UNK
     Route: 042
     Dates: start: 20101001, end: 20110101
  2. PLETAL [Concomitant]
     Route: 048
  3. LOXONIN [Concomitant]
  4. RINDERON                           /00008501/ [Concomitant]
  5. MICARDIS [Concomitant]
     Route: 048
  6. DORNER [Concomitant]
     Route: 048
  7. LANSOPRAZOLE [Concomitant]
  8. LASIX [Concomitant]
     Route: 048
  9. ALFAROL [Concomitant]
     Route: 048
  10. OXYCODONE HCL [Concomitant]
     Dosage: UNK
     Route: 065
     Dates: start: 20111113
  11. U-PASTA [Concomitant]
  12. ALLOPURINOL [Concomitant]
     Route: 048

REACTIONS (3)
  - HOSPITALISATION [None]
  - SKIN ULCER [None]
  - PAIN IN EXTREMITY [None]
